FAERS Safety Report 17390967 (Version 1)
Quarter: 2020Q1

REPORT INFORMATION
  Report Type: Spontaneous
  Country: ES (occurrence: ES)
  Receive Date: 20200207
  Receipt Date: 20200207
  Transmission Date: 20200409
  Serious: Yes (Other)
  Sender: FDA-Public Use
  Company Number: ES-009507513-2002ESP000650

PATIENT
  Sex: Female
  Weight: 73 kg

DRUGS (1)
  1. IMPLANON NXT [Suspect]
     Active Substance: ETONOGESTREL
     Indication: HORMONAL CONTRACEPTION
     Dosage: IMPLANT WITH APPLICATOR; INSERTION IN THE LEFT ARM
     Route: 058
     Dates: start: 20190918

REACTIONS (4)
  - Abnormal weight gain [Not Recovered/Not Resolved]
  - Mania [Recovering/Resolving]
  - Nervousness [Recovering/Resolving]
  - Anxiety [Recovering/Resolving]

NARRATIVE: CASE EVENT DATE: 20191001
